FAERS Safety Report 6521659-9 (Version None)
Quarter: 2009Q4

REPORT INFORMATION
  Report Type: 
  Country: None (occurrence: None)
  Receive Date: 20091230
  Receipt Date: 20091218
  Transmission Date: 20100525
  Serious: Yes (Hospitalization)
  Sender: FDA-Public Use
  Company Number: PHHY2009IT56976

PATIENT
  Sex: Male
  Weight: 88.5 kg

DRUGS (10)
  1. ALISKIREN ALI+ [Suspect]
     Indication: HYPERTENSION
     Route: 048
     Dates: start: 20091022, end: 20091118
  2. KADIUR [Concomitant]
     Indication: HYPERTENSION
     Dosage: 5/50 MG
     Dates: start: 20080625
  3. ATENOLOL [Concomitant]
     Indication: HYPERTENSION
     Dates: start: 20070417
  4. CARDURA [Concomitant]
     Indication: HYPERTENSION
     Dates: start: 20090216
  5. COAPROVEL [Concomitant]
     Indication: HYPERTENSION
     Dosage: 25/300 MG
     Dates: start: 20080625
  6. ENAPREN [Concomitant]
     Indication: HYPERTENSION
     Dates: start: 20080625
  7. NORVASC [Concomitant]
     Indication: HYPERTENSION
     Dates: start: 20090216
  8. ISMO [Concomitant]
     Indication: HYPERTENSION
     Dates: start: 20090216
  9. PLAVIX [Concomitant]
     Indication: CORONARY ARTERY DISEASE
     Dates: start: 20070417
  10. TORVAST [Concomitant]
     Indication: CORONARY ARTERY DISEASE
     Dosage: 40
     Dates: start: 20070417

REACTIONS (4)
  - ANGINA PECTORIS [None]
  - CORONARY ANGIOPLASTY [None]
  - MYOCARDIAL ISCHAEMIA [None]
  - STENT PLACEMENT [None]
